FAERS Safety Report 4836799-X (Version None)
Quarter: 2005Q4

REPORT INFORMATION
  Report Type: 
  Country: None (occurrence: None)
  Receive Date: 20051123
  Receipt Date: 20051004
  Transmission Date: 20060501
  Serious: Yes (Death, Other)
  Sender: FDA-Public Use
  Company Number: US-MERCK-0510USA03121

PATIENT
  Age: 62 Year
  Sex: Male
  Weight: 91 kg

DRUGS (5)
  1. VIOXX [Suspect]
     Indication: ARTHRITIS
     Route: 048
     Dates: start: 20000915, end: 20041010
  2. NORVASC [Concomitant]
     Route: 065
  3. LIPITOR [Concomitant]
     Route: 065
  4. THEO-DUR [Concomitant]
     Route: 065
  5. ACCUPRIL [Concomitant]
     Route: 065

REACTIONS (12)
  - ARRHYTHMIA [None]
  - ARTERIOSCLEROSIS CORONARY ARTERY [None]
  - BENIGN PROSTATIC HYPERPLASIA [None]
  - CHRONIC OBSTRUCTIVE PULMONARY DISEASE [None]
  - CIRCULATORY COLLAPSE [None]
  - HEPATOSPLENOMEGALY [None]
  - HYPERAEMIA [None]
  - HYPERTENSIVE HEART DISEASE [None]
  - LOSS OF CONSCIOUSNESS [None]
  - PROSTATISM [None]
  - RIB FRACTURE [None]
  - SPLEEN DISORDER [None]
